FAERS Safety Report 25083472 (Version 1)
Quarter: 2025Q1

REPORT INFORMATION
  Report Type: Spontaneous
  Country: US (occurrence: None)
  Receive Date: 20250314
  Receipt Date: 20250314
  Transmission Date: 20250408
  Serious: Yes (Hospitalization)
  Sender: FDA-CTU
  Company Number: None

PATIENT
  Age: 56 Year
  Sex: Female

DRUGS (1)
  1. ZARXIO [Suspect]
     Active Substance: FILGRASTIM-SNDZ
     Indication: Neutropenia
     Dosage: 300MCG DAILY SUB-Q
     Route: 058
     Dates: start: 202412

REACTIONS (2)
  - Device related infection [None]
  - Fatigue [None]

NARRATIVE: CASE EVENT DATE: 20241231
